FAERS Safety Report 22206963 (Version 1)
Quarter: 2023Q2

REPORT INFORMATION
  Report Type: Report from Study
  Country: CA (occurrence: CA)
  Receive Date: 20230413
  Receipt Date: 20230413
  Transmission Date: 20230722
  Serious: Yes (Other)
  Sender: FDA-Public Use
  Company Number: CA-HLS-202300851

PATIENT
  Sex: Male

DRUGS (3)
  1. CLOZARIL [Suspect]
     Active Substance: CLOZAPINE
     Indication: Seizure prophylaxis
     Dosage: 850MG/DAY
     Route: 048
     Dates: start: 20220216
  2. ABILIFY MAINTENA [Concomitant]
     Active Substance: ARIPIPRAZOLE
     Indication: Product used for unknown indication
     Dosage: INJECTION
     Route: 065
  3. DIVALPROEX SODIUM [Concomitant]
     Active Substance: DIVALPROEX SODIUM
     Indication: Seizure prophylaxis
     Dosage: ?500MG?BY MOUTH TWICE DAILY
     Route: 065

REACTIONS (2)
  - Hallucination [Unknown]
  - Off label use [Unknown]
